FAERS Safety Report 15007243 (Version 1)
Quarter: 2018Q2

REPORT INFORMATION
  Report Type: Spontaneous
  Country: DE (occurrence: DE)
  Receive Date: 20180613
  Receipt Date: 20180613
  Transmission Date: 20180711
  Serious: Yes (Other)
  Sender: FDA-Public Use
  Company Number: DE-MYLANLABS-2018M1028450

PATIENT
  Sex: Female
  Weight: 60 kg

DRUGS (2)
  1. MEDIKINET                          /00083801/ [Concomitant]
     Active Substance: METHYLPHENIDATE
     Indication: ATTENTION DEFICIT/HYPERACTIVITY DISORDER
     Dosage: 20 MG, QD
  2. SERTRALIN DURA 100 MG FILMTABLETTEN [Suspect]
     Active Substance: SERTRALINE HYDROCHLORIDE
     Indication: EATING DISORDER
     Dosage: UNK UNK, QD

REACTIONS (4)
  - Withdrawal syndrome [Unknown]
  - Affective disorder [Unknown]
  - Product odour abnormal [Unknown]
  - Renal impairment [Unknown]

NARRATIVE: CASE EVENT DATE: 20180426
